FAERS Safety Report 18395328 (Version 2)
Quarter: 2020Q4

REPORT INFORMATION
  Report Type: Spontaneous
  Country: US (occurrence: US)
  Receive Date: 20201017
  Receipt Date: 20201104
  Transmission Date: 20210114
  Serious: Yes (Hospitalization)
  Sender: FDA-Public Use
  Company Number: US-AUROBINDO-AUR-APL-2020-052166

PATIENT
  Age: 29 Year
  Sex: Female
  Weight: 104.32 kg

DRUGS (1)
  1. CLOZAPINE TABLET [Suspect]
     Active Substance: CLOZAPINE
     Indication: PRODUCT USED FOR UNKNOWN INDICATION
     Dosage: 200 MILLIGRAM, AT BED TIME
     Route: 048

REACTIONS (2)
  - Foreign body [Unknown]
  - Neutrophilia [Unknown]

NARRATIVE: CASE EVENT DATE: 20201007
